FAERS Safety Report 23593574 (Version 1)
Quarter: 2024Q1

REPORT INFORMATION
  Report Type: Report from Study
  Country: US (occurrence: US)
  Receive Date: 20240304
  Receipt Date: 20240304
  Transmission Date: 20240410
  Serious: Yes (Other)
  Sender: FDA-Public Use
  Company Number: US-JNJFOC-20240279195

PATIENT
  Age: 75 Year
  Sex: Male

DRUGS (1)
  1. APALUTAMIDE [Interacting]
     Active Substance: APALUTAMIDE
     Indication: Prostate cancer
     Route: 048

REACTIONS (2)
  - Drug interaction [Unknown]
  - Coagulation time shortened [Unknown]

NARRATIVE: CASE EVENT DATE: 20240226
